FAERS Safety Report 9768182 (Version 4)
Quarter: 2014Q1

REPORT INFORMATION
  Report Type: Spontaneous
  Country: FR (occurrence: FR)
  Receive Date: 20131217
  Receipt Date: 20140114
  Transmission Date: 20141002
  Serious: Yes (Other)
  Sender: FDA-Public Use
  Company Number: FR-GLAXOSMITHKLINE-B0952451A

PATIENT
  Age: 26 Year
  Sex: Female

DRUGS (1)
  1. VENTOLINE [Suspect]
     Indication: ASTHMA
     Dosage: 100MCG SINGLE DOSE
     Route: 055
     Dates: start: 20131207

REACTIONS (3)
  - Asphyxia [Recovered/Resolved]
  - Foreign body aspiration [Unknown]
  - Product quality issue [Unknown]
